FAERS Safety Report 5604100-X (Version None)
Quarter: 2008Q1

REPORT INFORMATION
  Report Type: 
  Country: None (occurrence: None)
  Receive Date: 20080123
  Receipt Date: 20080123
  Transmission Date: 20080703
  Serious: Yes (Death)
  Sender: FDA-Public Use
  Company Number: None

PATIENT
  Age: 4 Year
  Sex: Female

DRUGS (2)
  1. DIMETAPP DM EXLIR  CHILDRENS COLD MEDICINE  WYETH [Suspect]
     Indication: COUGH
     Dates: start: 19911006, end: 19911006
  2. DIMETAPP DM EXLIR  CHILDRENS COLD MEDICINE  WYETH [Suspect]
     Indication: RHINORRHOEA
     Dates: start: 19911006, end: 19911006

REACTIONS (1)
  - RESPIRATORY ARREST [None]
